FAERS Safety Report 6491177-5 (Version None)
Quarter: 2009Q4

REPORT INFORMATION
  Report Type: 
  Country: None (occurrence: None)
  Receive Date: 20091125
  Receipt Date: 20090603
  Transmission Date: 20100525
  Serious: Yes (Other)
  Sender: FDA-Public Use
  Company Number: 2009BH009299

PATIENT
  Age: 35 Year
  Sex: Male

DRUGS (2)
  1. DIANEAL [Suspect]
     Indication: PERITONEAL DIALYSIS
     Dosage: 15 L; EVERY DAY; IP
     Route: 033
     Dates: start: 20050101
  2. DIANEAL [Suspect]
     Indication: PERITONEAL DIALYSIS
     Dosage: 5 L; EVERY DAY; IP
     Route: 033
     Dates: start: 20050101

REACTIONS (2)
  - CONSTIPATION [None]
  - PERITONITIS BACTERIAL [None]
